FAERS Safety Report 4530871-X (Version None)
Quarter: 2004Q4

REPORT INFORMATION
  Report Type: 
  Country: None (occurrence: None)
  Receive Date: 20041215
  Receipt Date: 20041208
  Transmission Date: 20050328
  Serious: No
  Sender: FDA-Public Use
  Company Number: 210973

PATIENT
  Sex: Female

DRUGS (4)
  1. XOLAIR [Suspect]
     Indication: ASTHMA
  2. ADVAIR (FLUTICASONE PROPIONATE, SALMETEROL XINAFOATE) [Concomitant]
  3. SINGULAIR [Concomitant]
  4. ORAL STEROIDS (ORAL STEROIDS) [Concomitant]

REACTIONS (1)
  - ANAPHYLACTIC REACTION [None]
